FAERS Safety Report 10644858 (Version 2)
Quarter: 2014Q4

REPORT INFORMATION
  Report Type: Report from Study
  Country: RU (occurrence: RU)
  Receive Date: 20141211
  Receipt Date: 20141226
  Transmission Date: 20150529
  Serious: Yes (Other)
  Sender: FDA-Public Use
  Company Number: RU-ROCHE-1505263

PATIENT

DRUGS (1)
  1. CAPECITABINE. [Suspect]
     Active Substance: CAPECITABINE
     Indication: BREAST CANCER METASTATIC
     Dosage: 1 TO 14 DAYS EVERY 3 WEEKS
     Route: 048

REACTIONS (3)
  - Asthenia [Unknown]
  - Haematotoxicity [Unknown]
  - Thrombocytopenia [Unknown]
